FAERS Safety Report 8858652 (Version 1)
Quarter: 2012Q4

REPORT INFORMATION
  Report Type: 
  Country: BR (occurrence: BR)
  Receive Date: 20121024
  Receipt Date: 20121024
  Transmission Date: 20130627
  Serious: Yes (Death)
  Sender: FDA-Public Use
  Company Number: BR-BAYER-2012-110954

PATIENT
  Age: 43 Year
  Sex: Male

DRUGS (1)
  1. INTERFERON BETA - 1B [Suspect]
     Indication: PRODUCT USED FOR UNKNOWN INDICATION
     Route: 058

REACTIONS (1)
  - Death [Fatal]
